FAERS Safety Report 12305002 (Version 4)
Quarter: 2016Q2

REPORT INFORMATION
  Report Type: Other
  Country: CA (occurrence: CA)
  Receive Date: 20160426
  Receipt Date: 20160621
  Transmission Date: 20160815
  Serious: Yes (Hospitalization, Other)
  Sender: FDA-Public Use
  Company Number: CA-SHIRE-CA201604689

PATIENT
  Age: 48 Year
  Sex: Female

DRUGS (10)
  1. RANITIDINE. [Concomitant]
     Active Substance: RANITIDINE
     Indication: PRODUCT USED FOR UNKNOWN INDICATION
     Dosage: UNK, 1X/DAY:QD IN TPN
     Route: 042
  2. SALOFALK                           /00000301/ [Concomitant]
     Active Substance: MESALAMINE
     Indication: CROHN^S DISEASE
     Dosage: 500 MG, BID TO TID
     Route: 048
  3. VITAMIN D                          /00107901/ [Concomitant]
     Active Substance: ERGOCALCIFEROL
     Indication: PRODUCT USED FOR UNKNOWN INDICATION
     Dosage: 50000 IU, 3X/WEEKLY
     Route: 065
  4. VITAMIN C [Concomitant]
     Active Substance: ASCORBIC ACID
     Indication: PRODUCT USED FOR UNKNOWN INDICATION
     Dosage: 500 MG, 3 TO 4 TIMES WEEKLY
     Route: 065
  5. TPN [Concomitant]
     Active Substance: AMINO ACIDS\DEXTROSE\ELECTROLYTES NOS\SOYBEAN OIL
     Indication: PRODUCT USED FOR UNKNOWN INDICATION
     Dosage: 1800 ML, 1X/DAY:QD NIGHTLY OVER 12 HOURS
     Route: 042
  6. REVESTIVE [Suspect]
     Active Substance: TEDUGLUTIDE
     Indication: SHORT-BOWEL SYNDROME
     Dosage: 3.2 MG, 1X/DAY:QD
     Route: 058
     Dates: start: 20160331, end: 20160415
  7. VITAMIN K [Concomitant]
     Active Substance: PHYTONADIONE
     Indication: PRODUCT USED FOR UNKNOWN INDICATION
     Dosage: UNK, 1X/WEEK IN TPN
     Route: 042
  8. VENLAFAXINE [Concomitant]
     Active Substance: VENLAFAXINE HYDROCHLORIDE
     Indication: DEPRESSION
     Dosage: 75 MG, 1X/DAY:QD
     Route: 048
  9. MULTIVITAMIN                       /00097801/ [Concomitant]
     Active Substance: VITAMINS
     Indication: PRODUCT USED FOR UNKNOWN INDICATION
     Dosage: UNK, 1X/DAY:QD IN TPN
     Route: 042
  10. URSODIOL. [Concomitant]
     Active Substance: URSODIOL
     Indication: LIVER FUNCTION TEST INCREASED
     Dosage: 500 MG, 2X/DAY:BID
     Route: 048

REACTIONS (10)
  - Device related infection [Recovered/Resolved]
  - Nausea [Unknown]
  - Staphylococcal bacteraemia [Recovered/Resolved]
  - Flank pain [Unknown]
  - Pyrexia [Unknown]
  - Abdominal distension [Unknown]
  - Malaise [Unknown]
  - Headache [Unknown]
  - Dehydration [Unknown]
  - Vomiting [Unknown]

NARRATIVE: CASE EVENT DATE: 20160412
